FAERS Safety Report 7450433-4 (Version None)
Quarter: 2011Q2

REPORT INFORMATION
  Report Type: 
  Country: None (occurrence: None)
  Receive Date: 20110429
  Receipt Date: 20110429
  Transmission Date: 20111010
  Serious: Yes (Disabling)
  Sender: FDA-Public Use
  Company Number: None

PATIENT
  Sex: Female
  Weight: 49.8957 kg

DRUGS (1)
  1. DOCUSATE SODIUM LIQUID 50 MG PHARMACEUTICAL ASSOCIATES, INC. [Suspect]
     Indication: CONSTIPATION
     Dosage: 2 TEASPOONS PRN PO
     Route: 048
     Dates: start: 20110428, end: 20110428

REACTIONS (4)
  - BLOOD PRESSURE INCREASED [None]
  - DYSPNOEA [None]
  - HEART RATE INCREASED [None]
  - PAIN [None]
